FAERS Safety Report 20576963 (Version 2)
Quarter: 2022Q2

REPORT INFORMATION
  Report Type: Spontaneous
  Country: IE (occurrence: IE)
  Receive Date: 20220310
  Receipt Date: 20220401
  Transmission Date: 20220721
  Serious: Yes (Hospitalization)
  Sender: FDA-Public Use
  Company Number: None

PATIENT
  Age: 55 Year
  Sex: Male

DRUGS (8)
  1. OXALIPLATIN [Suspect]
     Active Substance: OXALIPLATIN
     Indication: Gastric cancer stage IV
     Dosage: ON OXALIPLATIN 165MG AS PART OF FLOT REGIMEN AND PATIENT WAS 24 MINUTES INTO HIS 2 HOUR INFUSION
     Route: 041
     Dates: start: 20220104
  2. OXALIPLATIN [Suspect]
     Active Substance: OXALIPLATIN
     Indication: Human epidermal growth factor receptor negative
  3. DOCETAXEL [Concomitant]
     Active Substance: DOCETAXEL
  4. DEXAMETHASONE [Concomitant]
     Active Substance: DEXAMETHASONE
     Dosage: 8 MG
     Route: 048
     Dates: start: 20220104
  5. ONDANSETRON [Concomitant]
     Active Substance: ONDANSETRON
     Dosage: 8 MG
     Route: 048
     Dates: start: 20220104
  6. ACETAMINOPHEN [Concomitant]
     Active Substance: ACETAMINOPHEN
     Dosage: 1 G, PRN
  7. CALCIUM\CHOLECALCIFEROL [Concomitant]
     Active Substance: CALCIUM\CHOLECALCIFEROL
     Dosage: 1 DF, BID
  8. LIPEGFILGRASTIM [Concomitant]
     Active Substance: LIPEGFILGRASTIM
     Dosage: 6 MG
     Route: 058

REACTIONS (5)
  - Flushing [Recovering/Resolving]
  - Dyspnoea [Recovering/Resolving]
  - Sinus tachycardia [Recovering/Resolving]
  - Abdominal pain [Recovering/Resolving]
  - Nausea [Recovering/Resolving]

NARRATIVE: CASE EVENT DATE: 20220104
